FAERS Safety Report 6826547-6 (Version None)
Quarter: 2010Q3

REPORT INFORMATION
  Report Type: 
  Country: None (occurrence: None)
  Receive Date: 20100709
  Receipt Date: 20100628
  Transmission Date: 20110219
  Serious: Yes (Hospitalization)
  Sender: FDA-Public Use
  Company Number: PHHY2010FR42465

PATIENT
  Sex: Female
  Weight: 60 kg

DRUGS (2)
  1. RASILEZ [Suspect]
     Indication: HYPERTENSION
     Dosage: 150 MG, QD
     Route: 048
     Dates: start: 20100205, end: 20100309
  2. EBASTINE [Interacting]
     Indication: HYPERSENSITIVITY
     Dosage: 10 MG, QD
     Route: 048

REACTIONS (3)
  - BLOOD PRESSURE INCREASED [None]
  - DRUG INTERACTION [None]
  - RENAL FAILURE ACUTE [None]
